FAERS Safety Report 18501870 (Version 1)
Quarter: 2020Q4

REPORT INFORMATION
  Report Type: Spontaneous
  Country: US (occurrence: US)
  Receive Date: 20201113
  Receipt Date: 20201113
  Transmission Date: 20210114
  Serious: Yes (Other)
  Sender: FDA-Public Use
  Company Number: None

PATIENT
  Age: 87 Year
  Sex: Female
  Weight: 49.5 kg

DRUGS (3)
  1. GENERIC CRESTOR [Concomitant]
     Active Substance: ROSUVASTATIN CALCIUM
  2. ROSUVASTATIN CALCIUM 10 MG [Suspect]
     Active Substance: ROSUVASTATIN CALCIUM
     Indication: BLOOD CHOLESTEROL
     Route: 048
     Dates: start: 20200529
  3. BLOOD THINNER [Concomitant]
     Active Substance: UNSPECIFIED INGREDIENT

REACTIONS (1)
  - Product commingling [None]

NARRATIVE: CASE EVENT DATE: 20200529
